FAERS Safety Report 14092933 (Version 2)
Quarter: 2017Q4

REPORT INFORMATION
  Report Type: Spontaneous
  Country: US (occurrence: US)
  Receive Date: 20171016
  Receipt Date: 20171204
  Transmission Date: 20180321
  Serious: Yes (Disabling, Other)
  Sender: FDA-Public Use
  Company Number: US-REGENERON PHARMACEUTICALS, INC.-2017-23830

PATIENT

DRUGS (2)
  1. EYLEA [Suspect]
     Active Substance: AFLIBERCEPT
     Indication: RETINAL VEIN OCCLUSION
     Dosage: 0.5 MG, EVERY 2 MONTHS, OS
     Route: 031
     Dates: start: 20141215
  2. EYLEA [Suspect]
     Active Substance: AFLIBERCEPT
     Dosage: 0.5 MG, EVERY 2 MONTHS, OS, LAST DOSE
     Route: 031
     Dates: start: 20170821, end: 20170825

REACTIONS (5)
  - Blindness transient [Recovered/Resolved]
  - Uveitis [Recovered/Resolved]
  - Anterior chamber cell [Recovered/Resolved]
  - Vitritis [Recovered/Resolved]
  - Vitreous floaters [Recovered/Resolved]

NARRATIVE: CASE EVENT DATE: 20170825
